FAERS Safety Report 22089547 (Version 1)
Quarter: 2023Q1

REPORT INFORMATION
  Report Type: Spontaneous
  Country: US (occurrence: US)
  Receive Date: 20230313
  Receipt Date: 20230313
  Transmission Date: 20230418
  Serious: Yes (Other)
  Sender: FDA-Public Use
  Company Number: US-drreddys-SPO/USA/23/0162096

PATIENT
  Age: 17 Year
  Sex: Female
  Weight: 81.5 kg

DRUGS (9)
  1. TACROLIMUS [Suspect]
     Active Substance: TACROLIMUS
     Indication: Product used for unknown indication
  2. NIFEDIPINE [Concomitant]
     Active Substance: NIFEDIPINE
     Indication: Product used for unknown indication
     Dosage: LOW DOSE
  3. IRON [Concomitant]
     Active Substance: IRON
     Indication: Mineral supplementation
     Dosage: LOW DOSE
  4. HYDROCHLOROTHIAZIDE [Concomitant]
     Active Substance: HYDROCHLOROTHIAZIDE
     Indication: Product used for unknown indication
     Dosage: LOW DOSE
  5. CHOLECALCIFEROL [Concomitant]
     Active Substance: CHOLECALCIFEROL
     Indication: Product used for unknown indication
     Dosage: LOW DOSE
  6. NORETHINDRONE [Concomitant]
     Active Substance: NORETHINDRONE
     Indication: Product used for unknown indication
     Dosage: LOW DOSE
  7. AZATHIOPRINE [Concomitant]
     Active Substance: AZATHIOPRINE
     Indication: Product used for unknown indication
     Dosage: LOW DOSE
  8. CLONIDINE [Concomitant]
     Active Substance: CLONIDINE
     Indication: Product used for unknown indication
     Dosage: LOW DOSE
  9. ASPIRIN [Concomitant]
     Active Substance: ASPIRIN
     Indication: Renal vein thrombosis
     Dosage: LOW DOSE

REACTIONS (1)
  - Myoclonus [Recovered/Resolved]
